FAERS Safety Report 7019858-5 (Version None)
Quarter: 2010Q3

REPORT INFORMATION
  Report Type: 
  Country: None (occurrence: None)
  Receive Date: 20100923
  Receipt Date: 20100910
  Transmission Date: 20110219
  Serious: Yes (Death)
  Sender: FDA-Public Use
  Company Number: 007738

PATIENT
  Sex: Female
  Weight: 120 kg

DRUGS (6)
  1. CIMZIA [Suspect]
     Indication: CROHN'S DISEASE
     Dosage: SUBCUTANEOUS
     Route: 058
     Dates: start: 20090819
  2. SEROQUEL [Concomitant]
  3. TRAZODONE HCL [Concomitant]
  4. CYMBALTA [Concomitant]
  5. CLONAZEPAM [Concomitant]
  6. CHLORPROMAZINE [Concomitant]

REACTIONS (1)
  - COMPLETED SUICIDE [None]
